FAERS Safety Report 5852527-3 (Version None)
Quarter: 2008Q3

REPORT INFORMATION
  Report Type: 
  Country: None (occurrence: None)
  Receive Date: 20080820
  Receipt Date: 20080820
  Transmission Date: 20090109
  Serious: Yes (Life-Threatening, Hospitalization)
  Sender: FDA-Public Use
  Company Number: None

PATIENT
  Sex: Female
  Weight: 29.4384 kg

DRUGS (4)
  1. LAMOTRIGINE [Suspect]
     Indication: BIPOLAR DISORDER
     Dosage: PO
     Route: 048
     Dates: start: 20080614, end: 20080630
  2. METOCLOPRAMIDE [Concomitant]
  3. SILVADENE [Concomitant]
  4. HEPARIN [Concomitant]

REACTIONS (1)
  - STEVENS-JOHNSON SYNDROME [None]
